FAERS Safety Report 7142193-1 (Version None)
Quarter: 2010Q4

REPORT INFORMATION
  Report Type: 
  Country: None (occurrence: None)
  Receive Date: 20101203
  Receipt Date: 20101203
  Transmission Date: 20110411
  Serious: Yes (Life-Threatening, Hospitalization)
  Sender: FDA-Public Use
  Company Number: None

PATIENT
  Sex: Female
  Weight: 109.7 kg

DRUGS (4)
  1. ISONIAZID [Suspect]
     Indication: LATENT TUBERCULOSIS
     Dosage: 300 MG DAILY PO
     Route: 048
     Dates: start: 20100825, end: 20101013
  2. SOMATROPIN [Concomitant]
  3. SYNTHROID [Concomitant]
  4. ALPRAZOLAM [Suspect]

REACTIONS (5)
  - ABDOMINAL PAIN UPPER [None]
  - FATIGUE [None]
  - HEPATOTOXICITY [None]
  - JAUNDICE [None]
  - WEIGHT DECREASED [None]
